FAERS Safety Report 17635770 (Version 2)
Quarter: 2020Q2

REPORT INFORMATION
  Report Type: Report from Study
  Country: None (occurrence: US)
  Receive Date: 20200406
  Receipt Date: 20200409
  Transmission Date: 20200713
  Serious: Yes (Death)
  Sender: FDA-Public Use
  Company Number: US-ABBVIE-20K-163-3353267-00

PATIENT
  Sex: Male

DRUGS (4)
  1. VENETOCLAX. [Suspect]
     Active Substance: VENETOCLAX
     Indication: T-CELL PROLYMPHOCYTIC LEUKAEMIA
     Route: 048
  2. VENETOCLAX. [Suspect]
     Active Substance: VENETOCLAX
     Route: 048
  3. VENETOCLAX. [Suspect]
     Active Substance: VENETOCLAX
     Route: 048
  4. VENETOCLAX. [Suspect]
     Active Substance: VENETOCLAX
     Route: 048

REACTIONS (2)
  - Off label use [Recovered/Resolved]
  - Dyspnoea [Fatal]
